FAERS Safety Report 22270860 (Version 1)
Quarter: 2023Q2

REPORT INFORMATION
  Report Type: Spontaneous
  Country: US (occurrence: US)
  Receive Date: 20230501
  Receipt Date: 20230501
  Transmission Date: 20230722
  Serious: No
  Sender: FDA-Public Use
  Company Number: US-PERRIGO-22US008375

PATIENT
  Age: 69 Year
  Sex: Female

DRUGS (1)
  1. MICONAZOLE 3 COMBINATION PACK [Suspect]
     Active Substance: MICONAZOLE NITRATE
     Indication: Vulvovaginal mycotic infection
     Dosage: UNK
     Route: 061
     Dates: start: 20220601, end: 20220603

REACTIONS (6)
  - Vulvovaginal pain [Not Recovered/Not Resolved]
  - Vulvovaginal erythema [Unknown]
  - Vulvovaginal disorder [Unknown]
  - Vulvovaginal discomfort [Not Recovered/Not Resolved]
  - Condition aggravated [Not Recovered/Not Resolved]
  - Vulvovaginal burning sensation [Not Recovered/Not Resolved]

NARRATIVE: CASE EVENT DATE: 20220601
